FAERS Safety Report 9342703 (Version 5)
Quarter: 2013Q3

REPORT INFORMATION
  Report Type: Spontaneous
  Country: US (occurrence: None)
  Receive Date: 20130607
  Receipt Date: 20130911
  Transmission Date: 20140515
  Serious: Yes (Death, Hospitalization, Other)
  Sender: FDA-Public Use
  Company Number: 2013US001681

PATIENT
  Age: 52 Year
  Sex: Male
  Weight: 112 kg

DRUGS (7)
  1. ICLUSIG [Suspect]
     Indication: CHRONIC MYELOID LEUKAEMIA
     Route: 048
     Dates: start: 20130410, end: 20130415
  2. AMLODIPINE (AMLODIPINE) [Concomitant]
  3. SMZ-TMP [Concomitant]
  4. ALLOPURINOL [Concomitant]
  5. METOPROLOL [Concomitant]
  6. CIPROFLOXACIN [Concomitant]
  7. SUCRALFATE [Concomitant]

REACTIONS (18)
  - Splenomegaly [None]
  - Throat lesion [None]
  - Haematoma [None]
  - Oral pain [None]
  - Stomatitis [None]
  - Decreased appetite [None]
  - Procedural pain [None]
  - Pleural effusion [None]
  - Abdominal pain [None]
  - Aphagia [None]
  - Renal failure [None]
  - Arrhythmia [None]
  - Pneumonia [None]
  - Pneumothorax [None]
  - Neutropenia [None]
  - Pancytopenia [None]
  - Productive cough [None]
  - Dyspnoea [None]
